FAERS Safety Report 10141056 (Version 1)
Quarter: 2014Q2

REPORT INFORMATION
  Report Type: Spontaneous
  Country: US (occurrence: US)
  Receive Date: 20140429
  Receipt Date: 20140429
  Transmission Date: 20141212
  Serious: Yes (Hospitalization)
  Sender: FDA-Public Use
  Company Number: ALCN2014US002640

PATIENT
  Age: 27 Week
  Sex: Female

DRUGS (1)
  1. CYCLOMYDRIL [Suspect]
     Indication: OPHTHALMOLOGICAL EXAMINATION
     Dosage: 1 GTT, ONCE3SDO (AT 5 TO 10 MIN INTERVALS)
     Route: 047

REACTIONS (8)
  - Cardio-respiratory arrest [Recovered/Resolved]
  - Unresponsive to stimuli [Recovered/Resolved]
  - Apnoeic attack [Recovered/Resolved]
  - Cyanosis [Recovered/Resolved]
  - Pulse absent [Recovered/Resolved]
  - Condition aggravated [Recovered/Resolved]
  - Bradycardia [Recovered/Resolved]
  - Pulmonary hypertension [Unknown]
